FAERS Safety Report 11457632 (Version 2)
Quarter: 2015Q3

REPORT INFORMATION
  Report Type: Spontaneous
  Country: FR (occurrence: FR)
  Receive Date: 20150904
  Receipt Date: 20150910
  Transmission Date: 20151125
  Serious: Yes (Other)
  Sender: FDA-Public Use
  Company Number: FR-ASTRAZENECA-2015SE83941

PATIENT
  Age: 22824 Day
  Sex: Female

DRUGS (6)
  1. MICARDIS [Concomitant]
     Active Substance: TELMISARTAN
     Route: 048
  2. INEXIUM [Concomitant]
     Active Substance: ESOMEPRAZOLE
     Route: 048
  3. STAGID [Concomitant]
     Active Substance: METFORMIN PAMOATE
     Route: 048
  4. TEMERIT [Concomitant]
     Active Substance: NEBIVOLOL
     Dosage: 1/4 TABELT PER DAY
     Route: 048
  5. ONGLYZA [Suspect]
     Active Substance: SAXAGLIPTIN HYDROCHLORIDE
     Indication: TYPE 2 DIABETES MELLITUS
     Route: 048
     Dates: end: 20150727
  6. DAONIL [Concomitant]
     Active Substance: GLYBURIDE
     Route: 048

REACTIONS (1)
  - Pancreatitis acute [Recovered/Resolved]

NARRATIVE: CASE EVENT DATE: 20150727
